FAERS Safety Report 9732885 (Version 1)
Quarter: 2013Q4

REPORT INFORMATION
  Report Type: Spontaneous
  Country: US (occurrence: US)
  Receive Date: 20131204
  Receipt Date: 20131204
  Transmission Date: 20140711
  Serious: No
  Sender: FDA-Public Use
  Company Number: US-GILEAD-2009-0022045

PATIENT
  Sex: Female
  Weight: 76.2 kg

DRUGS (10)
  1. LETAIRIS [Suspect]
     Indication: PULMONARY ARTERIAL HYPERTENSION
     Route: 048
     Dates: start: 20080710
  2. REVATIO [Concomitant]
  3. COUMADIN [Concomitant]
  4. ENALAPRIL MALEATE [Concomitant]
  5. NITROGLYCERIN [Concomitant]
  6. ZOCOR [Concomitant]
  7. SPIRONOLACTONE [Concomitant]
  8. ALPHAGAN P [Concomitant]
  9. LORATAB [Concomitant]
  10. PATADAY [Concomitant]

REACTIONS (1)
  - Fatigue [Unknown]
